FAERS Safety Report 8199658-3 (Version None)
Quarter: 2012Q1

REPORT INFORMATION
  Report Type: 
  Country: None (occurrence: None)
  Receive Date: 20120311
  Receipt Date: 20120301
  Transmission Date: 20120608
  Serious: Yes (Death)
  Sender: FDA-Public Use
  Company Number: JP-ASTRAZENECA-2012SE15178

PATIENT
  Sex: Female

DRUGS (4)
  1. EVE [Concomitant]
  2. ROHYPNOL [Concomitant]
  3. SEROQUEL [Suspect]
     Route: 048
  4. ESTAZOLAM [Concomitant]

REACTIONS (1)
  - DEATH [None]
